FAERS Safety Report 11699332 (Version 1)
Quarter: 2015Q4

REPORT INFORMATION
  Report Type: Report from Study
  Country: US (occurrence: US)
  Receive Date: 20151104
  Receipt Date: 20151104
  Transmission Date: 20160304
  Serious: No
  Sender: FDA-Public Use
  Company Number: US-AMGEN-USASL2015114963

PATIENT
  Age: 62 Year
  Sex: Female

DRUGS (5)
  1. METHOTREXATE [Concomitant]
     Active Substance: METHOTREXATE
     Dosage: UNK
  2. ENBREL [Suspect]
     Active Substance: ETANERCEPT
     Indication: RHEUMATOID ARTHRITIS
     Dosage: 50 MG, QWK
     Route: 065
  3. HYDROXYCHLOROQUINE [Concomitant]
     Active Substance: HYDROXYCHLOROQUINE
  4. PREDNISONE. [Concomitant]
     Active Substance: PREDNISONE
     Dosage: 6 MG, QD
     Dates: start: 2014
  5. NABUMETONE. [Concomitant]
     Active Substance: NABUMETONE

REACTIONS (6)
  - Pleural effusion [Unknown]
  - Inappropriate schedule of drug administration [Unknown]
  - Oropharyngeal pain [Unknown]
  - Sinusitis [Unknown]
  - Drug effect decreased [Unknown]
  - Sinus headache [Unknown]
